FAERS Safety Report 7440280-1 (Version None)
Quarter: 2011Q2

REPORT INFORMATION
  Report Type: 
  Country: None (occurrence: None)
  Receive Date: 20110427
  Receipt Date: 20110421
  Transmission Date: 20111010
  Serious: Yes (Other)
  Sender: FDA-Public Use
  Company Number: US-AMGEN-USASP2011017558

PATIENT
  Age: 39 Year
  Sex: Female

DRUGS (4)
  1. CYCLOPHOSPHAMIDE [Concomitant]
  2. XGEVA [Suspect]
     Indication: NEOPLASM
     Dosage: UNK
  3. METHOTREXATE [Concomitant]
  4. FLUOROURACIL [Concomitant]

REACTIONS (1)
  - BLOOD ALKALINE PHOSPHATASE INCREASED [None]
